FAERS Safety Report 7589216-3 (Version None)
Quarter: 2011Q3

REPORT INFORMATION
  Report Type: 
  Country: None (occurrence: None)
  Receive Date: 20110705
  Receipt Date: 20100921
  Transmission Date: 20111222
  Serious: Yes (Other)
  Sender: FDA-Public Use
  Company Number: US-BAYER-201019522NA

PATIENT
  Age: 57 Year
  Sex: Female
  Weight: 101 kg

DRUGS (34)
  1. MAGNEVIST [Suspect]
     Indication: NUCLEAR MAGNETIC RESONANCE IMAGING
     Dosage: UNK UNK, ONCE
     Route: 042
     Dates: start: 20040422, end: 20040422
  2. MULTIHANCE [Suspect]
     Indication: ANGIOGRAM
     Route: 042
  3. PROHANCE [Suspect]
     Indication: ANGIOGRAM
     Route: 042
  4. LANTUS [Concomitant]
  5. NOVOLOG [Concomitant]
  6. FOSRENOL [Concomitant]
  7. LORAZEPAM [Concomitant]
  8. MAGNEVIST [Suspect]
     Dosage: UNK, ONCE
     Route: 042
     Dates: start: 20060201, end: 20060201
  9. UNSPECIFIED GADOLINIUM BASED CONTRAST AGENT [Suspect]
     Indication: NUCLEAR MAGNETIC RESONANCE IMAGING
     Route: 042
     Dates: start: 20060321, end: 20060321
  10. MULTIHANCE [Suspect]
     Indication: NUCLEAR MAGNETIC RESONANCE IMAGING
  11. RENAGEL [Concomitant]
  12. UNSPECIFIED GADOLINIUM BASED CONTRAST AGENT [Suspect]
     Indication: NUCLEAR MAGNETIC RESONANCE IMAGING BRAIN
     Dosage: UNK UNK, ONCE
     Dates: start: 20040422, end: 20040422
  13. UNSPECIFIED GADOLINIUM BASED CONTRAST AGENT [Suspect]
     Dosage: UNK UNK, ONCE
     Route: 042
     Dates: start: 20060201, end: 20060201
  14. OMNISCAN [Suspect]
     Indication: ANGIOGRAM
     Route: 042
  15. OPTIMARK [Suspect]
     Indication: NUCLEAR MAGNETIC RESONANCE IMAGING
  16. PROHANCE [Suspect]
     Indication: NUCLEAR MAGNETIC RESONANCE IMAGING
  17. MAGNEVIST [Suspect]
     Dosage: UNK, ONCE
     Dates: start: 20050405, end: 20050405
  18. MAGNEVIST [Suspect]
     Indication: NUCLEAR MAGNETIC RESONANCE IMAGING BRAIN
     Dosage: UNK, ONCE
     Route: 042
     Dates: start: 20060321, end: 20060321
  19. UNSPECIFIED GADOLINIUM BASED CONTRAST AGENT [Suspect]
     Dosage: UNK, ONCE
     Route: 042
     Dates: start: 20070108, end: 20070108
  20. UNSPECIFIED GADOLINIUM BASED CONTRAST AGENT [Suspect]
  21. PHOSLO [Concomitant]
  22. PHENYTEK [Concomitant]
  23. DILANTIN [Concomitant]
  24. ARANESP [Concomitant]
  25. UNSPECIFIED GADOLINIUM BASED CONTRAST AGENT [Suspect]
     Dosage: UNK UNK, ONCE
     Dates: start: 20050405, end: 20050405
  26. NEURONTIN [Concomitant]
  27. OMNISCAN [Suspect]
     Indication: NUCLEAR MAGNETIC RESONANCE IMAGING
  28. OPTIMARK [Suspect]
     Indication: ANGIOGRAM
     Route: 042
  29. HYDROCODONE BITARTRATE [Concomitant]
  30. ARIXTRA [Concomitant]
  31. COUMADIN [Concomitant]
  32. METOPROLOL TARTRATE [Concomitant]
  33. LEVETIRACETAM [Concomitant]
  34. PLAVIX [Concomitant]

REACTIONS (18)
  - SKIN FIBROSIS [None]
  - SKIN DISCOLOURATION [None]
  - SKIN BURNING SENSATION [None]
  - SKIN TIGHTNESS [None]
  - PAIN [None]
  - SKIN PLAQUE [None]
  - SKIN HYPERTROPHY [None]
  - SKIN SWELLING [None]
  - JOINT RANGE OF MOTION DECREASED [None]
  - ERYTHEMA [None]
  - OEDEMA PERIPHERAL [None]
  - SKIN LESION [None]
  - NEPHROGENIC SYSTEMIC FIBROSIS [None]
  - SKIN INDURATION [None]
  - MUSCULAR WEAKNESS [None]
  - PRURITUS [None]
  - GENERAL PHYSICAL HEALTH DETERIORATION [None]
  - MOBILITY DECREASED [None]
